FAERS Safety Report 6678104-2 (Version None)
Quarter: 2010Q2

REPORT INFORMATION
  Report Type: 
  Country: None (occurrence: None)
  Receive Date: 20100412
  Receipt Date: 20100402
  Transmission Date: 20101027
  Serious: Yes (Hospitalization)
  Sender: FDA-Public Use
  Company Number: US-ROCHE-693592

PATIENT
  Sex: Female

DRUGS (2)
  1. BEVACIZUMAB [Suspect]
     Dosage: ON DAYS 1 AND 15.
     Route: 042
     Dates: start: 20090918, end: 20091230
  2. TEMSIROLIMUS [Suspect]
     Dosage: ON DAYS 1, 8, 15 AND 22.
     Route: 042
     Dates: start: 20090918, end: 20100113

REACTIONS (3)
  - BLOOD CREATININE INCREASED [None]
  - PERINEAL FISTULA [None]
  - PROCTALGIA [None]
